FAERS Safety Report 20009934 (Version 1)
Quarter: 2021Q4

REPORT INFORMATION
  Report Type: Report from Study
  Country: None (occurrence: PR)
  Receive Date: 20211029
  Receipt Date: 20211029
  Transmission Date: 20220303
  Serious: Yes (Other)
  Sender: FDA-Public Use
  Company Number: PR-ABBVIE-21K-131-4141048-00

PATIENT
  Age: 68 Year
  Sex: Female
  Weight: 75.82 kg

DRUGS (14)
  1. HUMIRA [Suspect]
     Active Substance: ADALIMUMAB
     Indication: Rheumatoid arthritis
     Route: 058
     Dates: start: 2018
  2. TOZINAMERAN [Concomitant]
     Active Substance: TOZINAMERAN
     Indication: COVID-19 immunisation
     Dosage: 1ST DOSE
     Route: 030
     Dates: start: 20210323, end: 20210323
  3. TOZINAMERAN [Concomitant]
     Active Substance: TOZINAMERAN
     Dosage: 2ND DOSE
     Route: 030
     Dates: start: 20210617, end: 20210617
  4. TOZINAMERAN [Concomitant]
     Active Substance: TOZINAMERAN
     Dosage: 3RD DOSE
     Route: 030
     Dates: start: 20210924, end: 20210924
  5. METHOTREXATE [Concomitant]
     Active Substance: METHOTREXATE
     Indication: Rheumatoid arthritis
     Route: 048
     Dates: start: 2018
  6. METOPROLOL [Concomitant]
     Active Substance: METOPROLOL
     Indication: Blood pressure abnormal
     Route: 048
     Dates: start: 2020
  7. LOSARTAN [Concomitant]
     Active Substance: LOSARTAN
     Indication: Blood pressure abnormal
     Route: 048
  8. ATORVASTATIN [Concomitant]
     Active Substance: ATORVASTATIN
     Indication: Blood cholesterol
     Route: 048
  9. ALLOPURINOL [Concomitant]
     Active Substance: ALLOPURINOL
     Indication: Gout
     Route: 048
  10. METFORMIN [Concomitant]
     Active Substance: METFORMIN HYDROCHLORIDE
     Indication: Diabetes mellitus
     Route: 048
  11. GLIPIZIDE [Concomitant]
     Active Substance: GLIPIZIDE
     Indication: Diabetes mellitus
     Route: 048
     Dates: start: 2021
  12. FAMOTIDINE [Concomitant]
     Active Substance: FAMOTIDINE
     Indication: Gastric disorder
     Route: 048
     Dates: start: 2020
  13. TAMSULOSIN [Concomitant]
     Active Substance: TAMSULOSIN
     Indication: Nephrolithiasis
     Route: 048
     Dates: start: 2021
  14. SYNTHROID [Concomitant]
     Active Substance: LEVOTHYROXINE SODIUM
     Indication: Thyroid disorder
     Route: 048

REACTIONS (2)
  - Tendon rupture [Recovering/Resolving]
  - Red blood cell sedimentation rate increased [Recovering/Resolving]

NARRATIVE: CASE EVENT DATE: 20210701
